FAERS Safety Report 8267254-5 (Version None)
Quarter: 2012Q2

REPORT INFORMATION
  Report Type: 
  Country: None (occurrence: None)
  Receive Date: 20120409
  Receipt Date: 20120402
  Transmission Date: 20120825
  Serious: Yes (Death)
  Sender: FDA-Public Use
  Company Number: CZ-ACCORD-013005

PATIENT
  Sex: Female

DRUGS (2)
  1. CARBOPLATIN [Suspect]
     Indication: OVARIAN CANCER
     Dosage: AUC 6, 8 CYCLES
     Dates: start: 20040101
  2. PACLITAXEL [Suspect]
     Indication: OVARIAN CANCER
     Dosage: 8 CYCLES
     Dates: start: 20040101

REACTIONS (1)
  - ACUTE MYELOID LEUKAEMIA [None]
